FAERS Safety Report 9378945 (Version 1)
Quarter: 2013Q1

REPORT INFORMATION
  Report Type: Spontaneous
  Country: DE (occurrence: None)
  Receive Date: 20121114
  Receipt Date: 20121114
  Transmission Date: 20140127
  Serious: Yes (Death, Hospitalization)
  Sender: FDA-Public Use
  Company Number: 219255

PATIENT
  Sex: Male
  Weight: 80 kg

DRUGS (2)
  1. INNOHEP (TINZAPARIN SODIUM) [Suspect]
     Indication: DEEP VEIN THROMBOSIS
     Dosage: 175 ANTI XA / KG WEIGHT
     Dates: start: 20120507
  2. INNOHEP (TINZAPARIN SODIUM) [Suspect]
     Indication: PULMONARY EMBOLISM
     Dosage: 175 ANTI XA / KG WEIGHT
     Dates: start: 20120507

REACTIONS (1)
  - Pneumonia [None]
